FAERS Safety Report 25940145 (Version 1)
Quarter: 2025Q4

REPORT INFORMATION
  Report Type: Spontaneous
  Country: US (occurrence: None)
  Receive Date: 20251018
  Receipt Date: 20251018
  Transmission Date: 20260117
  Serious: Yes (Hospitalization, Disabling)
  Sender: FDA-CTU
  Company Number: None

PATIENT
  Age: 47 Year
  Sex: Female
  Weight: 69.75 kg

DRUGS (18)
  1. SKYRIZI [Suspect]
     Active Substance: RISANKIZUMAB-RZAA
     Indication: Psoriasis
     Dosage: OTHER FREQUENCY : EVERY 3 MONTHS;?
     Route: 058
     Dates: start: 20250902, end: 20250902
  2. ATOMOXETINE [Concomitant]
     Active Substance: ATOMOXETINE
  3. bilateral hearing aids [Concomitant]
  4. ESCITALOPRAM [Concomitant]
     Active Substance: ESCITALOPRAM OXALATE
  5. GABAPENTIN [Concomitant]
     Active Substance: GABAPENTIN
  6. OMEPRAZOLE [Concomitant]
     Active Substance: OMEPRAZOLE
  7. ONDANSETRON [Concomitant]
     Active Substance: ONDANSETRON
  8. PROGESTERONE [Concomitant]
     Active Substance: PROGESTERONE
  9. QUETIAPINE [Concomitant]
     Active Substance: QUETIAPINE
  10. VITAMINS [Concomitant]
     Active Substance: VITAMINS
  11. CALCIUM [Concomitant]
     Active Substance: CALCIUM
  12. VITAMIN D3 [Concomitant]
     Active Substance: CHOLECALCIFEROL
  13. MAGNESIUM OXIDE [Concomitant]
     Active Substance: MAGNESIUM OXIDE
  14. IBUPROFEN [Concomitant]
     Active Substance: IBUPROFEN
  15. NAPROXEN SODIUM [Concomitant]
     Active Substance: NAPROXEN SODIUM
  16. UNSPECIFIED INGREDIENT [Concomitant]
     Active Substance: UNSPECIFIED INGREDIENT
  17. SIMETHICONE (DIMETHICONE) [Concomitant]
     Active Substance: DIMETHICONE
  18. LITHIUM OROTATE [Concomitant]
     Active Substance: LITHIUM OROTATE

REACTIONS (4)
  - Headache [None]
  - Dizziness [None]
  - Impaired driving ability [None]
  - Vestibular disorder [None]

NARRATIVE: CASE EVENT DATE: 20250908
